FAERS Safety Report 7345050-0 (Version None)
Quarter: 2011Q1

REPORT INFORMATION
  Report Type: 
  Country: None (occurrence: None)
  Receive Date: 20110310
  Receipt Date: 20110228
  Transmission Date: 20110831
  Serious: Yes (Hospitalization, Other)
  Sender: FDA-Public Use
  Company Number: US-ELI_LILLY_AND_COMPANY-US201008003865

PATIENT
  Sex: Female

DRUGS (15)
  1. SERTRALINE [Concomitant]
     Dosage: 25 MG, DAILY (1/D)
  2. FEMARA [Concomitant]
     Dosage: 2.5 MG, DAILY (1/D)
     Dates: start: 20090522
  3. CALCIUM [Concomitant]
     Dosage: 600 MG, UNK
     Dates: start: 20060815
  4. AMITRIPTYLINE [Concomitant]
     Dosage: 50 MG, EACH EVENING
     Dates: start: 20100610
  5. BUSPIRONE [Concomitant]
     Dosage: 5 MG, DAILY (1/D)
  6. FLUOXETINE [Concomitant]
     Dosage: 20 UG, DAILY (1/D)
  7. VITAMIN D [Concomitant]
     Dosage: 50000 U, WEEKLY (1/W)
     Dates: start: 20100429
  8. FORTEO [Suspect]
     Indication: OSTEOPOROSIS
     Dosage: 20 UG, DAILY (1/D)
  9. DORZOLAMIDE [Concomitant]
     Dosage: UNK, 2/D
  10. MULTI-VITAMIN [Concomitant]
     Dosage: UNK, DAILY (1/D)
     Route: 048
  11. TYLENOL (CAPLET) [Concomitant]
  12. MEGESTROL ACETATE [Concomitant]
     Dosage: 40 MG, DAILY (1/D)
  13. TRAVATAN [Concomitant]
     Dosage: UNK, DAILY (1/D)
  14. OXYCODONE HCL AND ACETAMINOPHEN [Concomitant]
     Dosage: UNK, AS NEEDED
  15. VICODIN [Concomitant]
     Indication: PAIN
     Dates: start: 20100429

REACTIONS (11)
  - HEADACHE [None]
  - BLINDNESS [None]
  - VISUAL ACUITY REDUCED [None]
  - SUBDURAL HAEMATOMA [None]
  - JAW FRACTURE [None]
  - INJECTION SITE PAIN [None]
  - CEREBRAL HAEMORRHAGE [None]
  - FALL [None]
  - SURGERY [None]
  - BACK PAIN [None]
  - ARTHRALGIA [None]
